FAERS Safety Report 6972879-0 (Version None)
Quarter: 2010Q3

REPORT INFORMATION
  Report Type: 
  Country: None (occurrence: None)
  Receive Date: 20100824
  Receipt Date: 20100604
  Transmission Date: 20110219
  Serious: No
  Sender: FDA-Public Use
  Company Number: 309634

PATIENT
  Age: 68 Year
  Sex: Female

DRUGS (3)
  1. VICTOZA [Suspect]
     Indication: TYPE 1 DIABETES MELLITUS
     Dosage: SUBCUTANEOUS
     Route: 058
  2. ACTOS [Suspect]
     Indication: TYPE 1 DIABETES MELLITUS
     Dosage: ORAL
     Route: 048
  3. GLIPIZIDE [Suspect]
     Indication: TYPE 1 DIABETES MELLITUS
     Dosage: ORAL
     Route: 048

REACTIONS (2)
  - DYSGEUSIA [None]
  - INCREASED UPPER AIRWAY SECRETION [None]
